FAERS Safety Report 6931029-7 (Version None)
Quarter: 2010Q3

REPORT INFORMATION
  Report Type: 
  Country: None (occurrence: None)
  Receive Date: 20100818
  Receipt Date: 20100812
  Transmission Date: 20110219
  Serious: Yes (Other)
  Sender: FDA-Public Use
  Company Number: US-CEPHALON-2010004312

PATIENT
  Sex: Male

DRUGS (1)
  1. TRISENOX [Suspect]
     Indication: ACUTE PROMYELOCYTIC LEUKAEMIA
     Route: 041

REACTIONS (3)
  - HAEMORRHAGE [None]
  - TREMOR [None]
  - VISION BLURRED [None]
